FAERS Safety Report 6919548-0 (Version None)
Quarter: 2010Q3

REPORT INFORMATION
  Report Type: 
  Country: None (occurrence: None)
  Receive Date: 20100810
  Receipt Date: 20100810
  Transmission Date: 20110219
  Serious: Yes (Other)
  Sender: FDA-Public Use
  Company Number: None

PATIENT
  Age: 56 Year
  Sex: Female
  Weight: 90.7194 kg

DRUGS (1)
  1. ENBREL [Suspect]
     Indication: PSORIASIS
     Dosage: ?? ONE INJECTION/WEEK SQ
     Route: 058
     Dates: start: 20070802, end: 20090802

REACTIONS (7)
  - DEMYELINATION [None]
  - EYE PAIN [None]
  - FATIGUE [None]
  - HYPERREFLEXIA [None]
  - MULTIPLE SCLEROSIS [None]
  - OPTIC NEURITIS [None]
  - VISION BLURRED [None]
